FAERS Safety Report 9103213 (Version 3)
Quarter: 2013Q3

REPORT INFORMATION
  Report Type: Report from Study
  Country: DE (occurrence: DE)
  Receive Date: 20130219
  Receipt Date: 20130701
  Transmission Date: 20140515
  Serious: Yes (Death)
  Sender: FDA-Public Use
  Company Number: PHHY2013DE015382

PATIENT
  Age: 35 Year
  Sex: Male

DRUGS (3)
  1. GILENYA [Suspect]
     Indication: MULTIPLE SCLEROSIS
     Dosage: 0.5 MG, DAILY
     Route: 048
     Dates: start: 20120101, end: 20120328
  2. PANTOPRAZOLE [Concomitant]
     Indication: REFLUX GASTRITIS
     Dosage: 40 MG, UNK
  3. SPASMOLYT [Concomitant]
     Indication: INCONTINENCE
     Dosage: 10 MG, UNK

REACTIONS (2)
  - Pulmonary embolism [Fatal]
  - Myocardial infarction [Fatal]
